FAERS Safety Report 4578334-X (Version None)
Quarter: 2005Q1

REPORT INFORMATION
  Report Type: 
  Country: None (occurrence: None)
  Receive Date: 20050211
  Receipt Date: 20050204
  Transmission Date: 20050727
  Serious: Yes (Other)
  Sender: FDA-Public Use
  Company Number: PHRM2005FR00739

PATIENT
  Age: 69 Year
  Sex: Male

DRUGS (1)
  1. LAMISIL [Suspect]
     Route: 065

REACTIONS (8)
  - ASTHENIA [None]
  - CHILLS [None]
  - DYSPEPSIA [None]
  - HEADACHE [None]
  - LIVER FUNCTION TEST ABNORMAL [None]
  - MYALGIA [None]
  - PYREXIA [None]
  - WEIGHT INCREASED [None]
